FAERS Safety Report 11082200 (Version 2)
Quarter: 2015Q2

REPORT INFORMATION
  Report Type: Report from Study
  Country: BR (occurrence: BR)
  Receive Date: 20150501
  Receipt Date: 20150516
  Transmission Date: 20150821
  Serious: Yes (Other)
  Sender: FDA-Public Use
  Company Number: ALCN2015BR002824

PATIENT
  Sex: Female

DRUGS (1)
  1. DUOTRAV [BAC] [Suspect]
     Active Substance: TIMOLOL\TRAVOPROST
     Dosage: 1 DF, UNK
     Route: 047

REACTIONS (2)
  - Cataract [Unknown]
  - Ocular hyperaemia [Recovered/Resolved]
